FAERS Safety Report 6266503-2 (Version None)
Quarter: 2009Q3

REPORT INFORMATION
  Report Type: 
  Country: None (occurrence: None)
  Receive Date: 20090710
  Receipt Date: 20090630
  Transmission Date: 20100115
  Serious: Yes (Other)
  Sender: FDA-Public Use
  Company Number: 8029446

PATIENT
  Age: 33 Year
  Sex: Female
  Weight: 58.18 kg

DRUGS (6)
  1. KEPPRA [Suspect]
     Indication: CONVULSION
     Dosage: 250 MG /D PO
     Route: 048
     Dates: start: 20020101, end: 20070701
  2. KEPPRA [Suspect]
     Indication: CONVULSION
     Dosage: 250 MG /D PO
     Route: 048
     Dates: start: 20070101, end: 20081228
  3. TOPAMAX [Concomitant]
  4. DILANTIN [Concomitant]
  5. TRILEPTAL [Concomitant]
  6. PROMETRIUM [Concomitant]

REACTIONS (7)
  - CONVULSION [None]
  - DIZZINESS [None]
  - DRUG WITHDRAWAL CONVULSIONS [None]
  - FATIGUE [None]
  - MIGRAINE [None]
  - NYSTAGMUS [None]
  - SOMNOLENCE [None]
